FAERS Safety Report 7360021-6 (Version None)
Quarter: 2011Q1

REPORT INFORMATION
  Report Type: 
  Country: None (occurrence: None)
  Receive Date: 20110317
  Receipt Date: 20110309
  Transmission Date: 20110831
  Serious: Yes (Hospitalization, Other)
  Sender: FDA-Public Use
  Company Number: US-RB-017862-10

PATIENT
  Age: 49 Year
  Sex: Female

DRUGS (3)
  1. HALDOL [Suspect]
     Indication: PRODUCT USED FOR UNKNOWN INDICATION
     Dosage: DOSING INFORMATION UNKNOWN
     Route: 065
  2. SUBOXONE [Suspect]
     Indication: PRODUCT USED FOR UNKNOWN INDICATION
     Dosage: UNKNOWN DOSING DETAILS
     Route: 065
  3. SUBOXONE [Suspect]
     Indication: PRODUCT USED FOR UNKNOWN INDICATION
     Dosage: UNKNOWN DOSING DETAILS / SUBLINGUAL FILM
     Route: 065

REACTIONS (17)
  - DRUG WITHDRAWAL SYNDROME [None]
  - RESPIRATORY DISTRESS [None]
  - ABDOMINAL DISCOMFORT [None]
  - HALLUCINATION [None]
  - INSOMNIA [None]
  - MICTURITION URGENCY [None]
  - INTENTIONAL DRUG MISUSE [None]
  - HERNIA [None]
  - PANIC ATTACK [None]
  - DEPRESSION [None]
  - MUSCULOSKELETAL STIFFNESS [None]
  - CARPAL TUNNEL SYNDROME [None]
  - HYPERSOMNIA [None]
  - NAUSEA [None]
  - GASTROINTESTINAL DISORDER [None]
  - INFLUENZA LIKE ILLNESS [None]
  - VISION BLURRED [None]
